FAERS Safety Report 8357413-5 (Version None)
Quarter: 2012Q2

REPORT INFORMATION
  Report Type: 
  Country: None (occurrence: None)
  Receive Date: 20120510
  Receipt Date: 20120504
  Transmission Date: 20120825
  Serious: Yes (Death)
  Sender: FDA-Public Use
  Company Number: 2012SP023748

PATIENT
  Sex: Male

DRUGS (1)
  1. PEGINTERFERON ALFA-2B [Suspect]
     Indication: HEPATITIS C
     Dosage: 100 MCG
     Dates: start: 20120314, end: 20120425

REACTIONS (1)
  - DEATH [None]
